FAERS Safety Report 19273053 (Version 1)
Quarter: 2021Q2

REPORT INFORMATION
  Report Type: Other
  Country: CA (occurrence: CA)
  Receive Date: 20210519
  Receipt Date: 20210519
  Transmission Date: 20210717
  Serious: Yes (Life-Threatening, Hospitalization)
  Sender: FDA-Public Use
  Company Number: CA-APOTEX-2021AP011753

PATIENT
  Age: 72 Year
  Sex: Male

DRUGS (3)
  1. CANNABIS [Concomitant]
     Active Substance: CANNABIS SATIVA SUBSP. INDICA TOP
     Indication: PRODUCT USED FOR UNKNOWN INDICATION
     Route: 065
  2. APO?IMATINIB [Suspect]
     Active Substance: IMATINIB
     Indication: CHRONIC MYELOID LEUKAEMIA
     Dosage: 200 MILLIGRAM, QD
     Route: 048
  3. PMS PERINDOPRIL [Suspect]
     Active Substance: PERINDOPRIL ERBUMINE
     Indication: HYPERTENSION
     Dosage: 2 MILLIGRAM, QD
     Route: 048

REACTIONS (2)
  - Dyspnoea [Unknown]
  - Tongue oedema [Unknown]
